FAERS Safety Report 8398070-1 (Version None)
Quarter: 2012Q2

REPORT INFORMATION
  Report Type: 
  Country: None (occurrence: None)
  Receive Date: 20120524
  Receipt Date: 20120511
  Transmission Date: 20120825
  Serious: Yes (Other)
  Sender: FDA-Public Use
  Company Number: 2012SA015051

PATIENT
  Age: 54 Year
  Sex: Female
  Weight: 55.33 kg

DRUGS (8)
  1. ACT TOTAL CARE DRY MOUTH MINT [Suspect]
     Indication: DRY MOUTH
     Dosage: TWICE A DAY
     Dates: start: 20111123, end: 20111126
  2. PREDNISONE [Concomitant]
  3. POTASSIUM CHLORIDE [Concomitant]
  4. DILAUDID [Concomitant]
  5. FOLIC ACID [Concomitant]
  6. SOLU-MEDROL [Concomitant]
  7. WARFARIN SODIUM [Concomitant]
  8. METHOTREXATE [Concomitant]

REACTIONS (7)
  - PAIN [None]
  - MOUTH INJURY [None]
  - GLOSSODYNIA [None]
  - DYSPNOEA [None]
  - OBSTRUCTIVE AIRWAYS DISORDER [None]
  - AGEUSIA [None]
  - SWOLLEN TONGUE [None]
